FAERS Safety Report 24802735 (Version 1)
Quarter: 2025Q1

REPORT INFORMATION
  Report Type: Spontaneous
  Country: US (occurrence: US)
  Receive Date: 20250103
  Receipt Date: 20250103
  Transmission Date: 20250409
  Serious: No
  Sender: SANOFI AVENTIS
  Company Number: US-SANOFI-02354389

PATIENT
  Age: 68 Year
  Sex: Female

DRUGS (3)
  1. LANTUS SOLOSTAR [Suspect]
     Active Substance: INSULIN GLARGINE
     Indication: Type 2 diabetes mellitus
     Dosage: UNK UNK, QD
  2. OZEMPIC [Concomitant]
     Active Substance: SEMAGLUTIDE
     Dosage: ONCE A WEEK ON MONDAY
  3. FARXIGA [Concomitant]
     Active Substance: DAPAGLIFLOZIN PROPANEDIOL

REACTIONS (5)
  - Oropharyngeal pain [Unknown]
  - Dizziness [Unknown]
  - Confusional state [Unknown]
  - Blood glucose fluctuation [Unknown]
  - Intentional product misuse [Unknown]
